FAERS Safety Report 23539011 (Version 4)
Quarter: 2025Q4

REPORT INFORMATION
  Report Type: Spontaneous
  Country: EU (occurrence: EU)
  Receive Date: 20240219
  Receipt Date: 20251117
  Transmission Date: 20260117
  Serious: Yes (Other)
  Sender: CELLTRION
  Company Number: EU-CELLTRION INC.-2024PL003553

PATIENT

DRUGS (2)
  1. RITUXIMAB [Suspect]
     Active Substance: RITUXIMAB
     Indication: Product used for unknown indication
     Dosage: ON 17/OCT/2023, HE HAD LAST INFUSION OF RITUXIMAB.
     Dates: start: 20231017
  2. CELLCEPT [Suspect]
     Active Substance: MYCOPHENOLATE MOFETIL
     Indication: Product used for unknown indication
     Dosage: UNK

REACTIONS (8)
  - Pancreatitis acute [Unknown]
  - Eosinophilic granulomatosis with polyangiitis [Unknown]
  - Vasculitis necrotising [Unknown]
  - Disease progression [Unknown]
  - Myopathy [Unknown]
  - General physical health deterioration [Unknown]
  - Asthenia [Unknown]
  - Drug ineffective [Unknown]
